FAERS Safety Report 8496576-8 (Version None)
Quarter: 2012Q3

REPORT INFORMATION
  Report Type: 
  Country: None (occurrence: None)
  Receive Date: 20120709
  Receipt Date: 20120629
  Transmission Date: 20120928
  Serious: Yes (Other)
  Sender: FDA-Public Use
  Company Number: US-ASTRAZENECA-2012SE44614

PATIENT
  Sex: Male

DRUGS (2)
  1. PEPCID [Concomitant]
  2. NEXIUM [Suspect]
     Route: 048

REACTIONS (4)
  - REGURGITATION [None]
  - DRUG DOSE OMISSION [None]
  - INTENTIONAL DRUG MISUSE [None]
  - NERVE INJURY [None]
